FAERS Safety Report 25044346 (Version 2)
Quarter: 2025Q1

REPORT INFORMATION
  Report Type: Spontaneous
  Country: NL (occurrence: NL)
  Receive Date: 20250306
  Receipt Date: 20250310
  Transmission Date: 20250408
  Serious: Yes (Other)
  Sender: ROCHE
  Company Number: None

PATIENT
  Age: 14 Year
  Sex: Female

DRUGS (6)
  1. RITUXIMAB [Suspect]
     Active Substance: RITUXIMAB
     Indication: Evans syndrome
     Route: 042
  2. RITUXIMAB [Suspect]
     Active Substance: RITUXIMAB
     Route: 042
  3. PREDNISONE [Concomitant]
     Active Substance: PREDNISONE
  4. ACETAMINOPHEN [Concomitant]
     Active Substance: ACETAMINOPHEN
     Indication: Premedication
  5. CLEMASTINE [Concomitant]
     Active Substance: CLEMASTINE
     Indication: Premedication
  6. METHYLPREDNISOLONE [Concomitant]
     Active Substance: METHYLPREDNISOLONE
     Indication: Premedication

REACTIONS (8)
  - Anaphylactic reaction [Recovered/Resolved]
  - Nausea [Recovered/Resolved]
  - Flushing [Recovered/Resolved]
  - Stridor [Recovered/Resolved]
  - Use of accessory respiratory muscles [Recovered/Resolved]
  - Dyspnoea [Recovered/Resolved]
  - Tachypnoea [Recovered/Resolved]
  - Off label use [Unknown]
